FAERS Safety Report 8132872-1 (Version None)
Quarter: 2012Q1

REPORT INFORMATION
  Report Type: 
  Country: None (occurrence: None)
  Receive Date: 20120103
  Receipt Date: 20110923
  Transmission Date: 20120608
  Serious: No
  Sender: FDA-Public Use
  Company Number: AE-2011-001769

PATIENT
  Age: 55 Year
  Sex: Male
  Weight: 138.8007 kg

DRUGS (4)
  1. RIBAVIRIN [Concomitant]
  2. PEGASYS [Concomitant]
  3. INCIVEK [Suspect]
     Dosage: 2250 MG (750 MG,3 IN 1 D),ORAL
     Route: 048
     Dates: start: 20110905
  4. MULTIVITAMIN [Concomitant]

REACTIONS (9)
  - ANAEMIA [None]
  - NAUSEA [None]
  - PYREXIA [None]
  - DIARRHOEA [None]
  - SKIN WARM [None]
  - HYPERHIDROSIS [None]
  - PARAESTHESIA [None]
  - HEADACHE [None]
  - CHILLS [None]
